FAERS Safety Report 4341454-9 (Version None)
Quarter: 2004Q2

REPORT INFORMATION
  Report Type: 
  Country: None (occurrence: None)
  Receive Date: 20040419
  Receipt Date: 20040408
  Transmission Date: 20050107
  Serious: No
  Sender: FDA-Public Use
  Company Number: 7802

PATIENT
  Age: 63 Year
  Sex: Female

DRUGS (5)
  1. AMIODARONE HCL [Suspect]
     Indication: VENTRICULAR TACHYCARDIA
     Dosage: 100 MG; PO
     Route: 048
     Dates: start: 20010101, end: 20040304
  2. SIMVASTATIN [Concomitant]
  3. ASPIRIN [Concomitant]
  4. FUROSEMIDE [Concomitant]
  5. BISOPROLOL [Concomitant]

REACTIONS (1)
  - PULMONARY FIBROSIS [None]
